FAERS Safety Report 9341368 (Version 2)
Quarter: 2013Q2

REPORT INFORMATION
  Report Type: Spontaneous
  Country: IT (occurrence: IT)
  Receive Date: 20130611
  Receipt Date: 20130625
  Transmission Date: 20140414
  Serious: Yes (Hospitalization, Other)
  Sender: FDA-Public Use
  Company Number: IT-JNJFOC-20130604243

PATIENT
  Age: 51 Year
  Sex: Female

DRUGS (3)
  1. ZIRTEC [Suspect]
     Route: 048
  2. ZIRTEC [Suspect]
     Indication: PRODUCT USED FOR UNKNOWN INDICATION
     Dosage: TOTAL DOSE 100 MG
     Route: 048
     Dates: start: 20130424, end: 20130424
  3. AUGMENTIN [Suspect]
     Indication: PRODUCT USED FOR UNKNOWN INDICATION
     Dosage: 3 TABLETS
     Route: 048
     Dates: start: 20130424, end: 20130424

REACTIONS (6)
  - Suicide attempt [Recovering/Resolving]
  - Hypokalaemia [Recovering/Resolving]
  - Sopor [Recovering/Resolving]
  - Intentional overdose [Unknown]
  - Abdominal pain [Unknown]
  - Somnolence [Unknown]
